FAERS Safety Report 4723818-4 (Version None)
Quarter: 2005Q3

REPORT INFORMATION
  Report Type: 
  Country: None (occurrence: None)
  Receive Date: 20050722
  Receipt Date: 20050712
  Transmission Date: 20060218
  Serious: Yes (Hospitalization)
  Sender: FDA-Public Use
  Company Number: 2005092168

PATIENT
  Age: 57 Year
  Sex: Male

DRUGS (7)
  1. FRAGMIN [Suspect]
     Indication: THROMBOSIS
     Dosage: 10000 I.U. (10000 I.U., 1 IN 1 D), SUBCUTANEOUS
     Route: 058
     Dates: start: 20041116
  2. AVANDIA [Concomitant]
  3. LISINOPRIL [Concomitant]
  4. COLACE (DOCUSATE SODIUM) [Concomitant]
  5. OXYCODONE (OXYCODONE) [Concomitant]
  6. VITAMIN B12 [Concomitant]
  7. MS CONTIN [Concomitant]

REACTIONS (11)
  - COLOSTOMY INFECTION [None]
  - FISTULA [None]
  - HYDRONEPHROSIS [None]
  - INCORRECT DOSE ADMINISTERED [None]
  - MEDICAL DEVICE COMPLICATION [None]
  - NAUSEA [None]
  - OBSTRUCTION [None]
  - PHARMACEUTICAL PRODUCT COMPLAINT [None]
  - STOMACH DISCOMFORT [None]
  - VOMITING [None]
  - WEIGHT DECREASED [None]
